FAERS Safety Report 14657099 (Version 5)
Quarter: 2018Q3

REPORT INFORMATION
  Report Type: Report from Study
  Country: US (occurrence: US)
  Receive Date: 20180319
  Receipt Date: 20180724
  Transmission Date: 20181010
  Serious: Yes (Hospitalization)
  Sender: FDA-Public Use
  Company Number: US-ACTELION-A-US2016-132431

PATIENT
  Age: 38 Year
  Sex: Male
  Weight: 81.63 kg

DRUGS (6)
  1. ADCIRCA [Concomitant]
     Active Substance: TADALAFIL
     Dosage: 40 MG, QD
     Route: 048
     Dates: start: 201210, end: 20180504
  2. VELETRI [Suspect]
     Active Substance: EPOPROSTENOL
     Dosage: 14 NG/KG, PER MIN
     Route: 042
     Dates: start: 20131008
  3. VELETRI [Suspect]
     Active Substance: EPOPROSTENOL
     Indication: PULMONARY HYPERTENSION
     Dosage: 17 NG/KG, PER MIN
     Route: 042
     Dates: start: 201310, end: 201805
  4. OPSUMIT [Suspect]
     Active Substance: MACITENTAN
     Indication: PULMONARY HYPERTENSION
     Dosage: 10 MG, QD
     Route: 048
     Dates: start: 201609, end: 201805
  5. VELETRI [Suspect]
     Active Substance: EPOPROSTENOL
     Dosage: 16 NG/KG, PER MIN
     Route: 042
  6. COUMADIN [Concomitant]
     Active Substance: WARFARIN SODIUM

REACTIONS (15)
  - Pain in jaw [Unknown]
  - Pain in extremity [Unknown]
  - Diarrhoea [Unknown]
  - Dyspnoea [Unknown]
  - Disease progression [Unknown]
  - Dyspnoea exertional [Unknown]
  - Chest pain [Unknown]
  - Heart and lung transplant [Unknown]
  - Device dislocation [Unknown]
  - Flushing [Unknown]
  - Medical device change [Unknown]
  - Pulmonary vascular resistance abnormality [Unknown]
  - Pulmonary arterial hypertension [Unknown]
  - Palpitations [Unknown]
  - Exercise tolerance decreased [Unknown]

NARRATIVE: CASE EVENT DATE: 20180504
